FAERS Safety Report 5907386-7 (Version None)
Quarter: 2008Q4

REPORT INFORMATION
  Report Type: 
  Country: None (occurrence: None)
  Receive Date: 20081003
  Receipt Date: 20080923
  Transmission Date: 20090506
  Serious: Yes (Other)
  Sender: FDA-Public Use
  Company Number: US-BAXTER-2008BH010026

PATIENT
  Sex: Female

DRUGS (41)
  1. GAMMAGARD S/D [Suspect]
     Indication: POLYMYOSITIS
     Dosage: DOSE UNIT:UNKNOWN
     Route: 042
     Dates: start: 20080101
  2. GAMMAGARD S/D [Suspect]
     Indication: OFF LABEL USE
     Dosage: DOSE UNIT:UNKNOWN
     Route: 042
     Dates: start: 20080101
  3. GAMMAGARD S/D [Suspect]
     Dosage: DOSE UNIT:UNKNOWN
     Route: 042
     Dates: start: 20080101
  4. GAMMAGARD S/D [Suspect]
     Dosage: DOSE UNIT:UNKNOWN
     Route: 042
     Dates: start: 20080101
  5. GAMMAGARD S/D [Suspect]
     Dosage: DOSE UNIT:UNKNOWN
     Route: 042
     Dates: start: 20080101
  6. GAMMAGARD S/D [Suspect]
     Dosage: DOSE UNIT:UNKNOWN
     Route: 042
     Dates: start: 20080101
  7. GAMMAGARD S/D [Suspect]
     Dosage: DOSE UNIT:UNKNOWN
     Route: 042
     Dates: start: 20080101
  8. GAMMAGARD S/D [Suspect]
     Dosage: DOSE UNIT:UNKNOWN
     Route: 042
     Dates: start: 20080101
  9. GAMMAGARD S/D [Suspect]
     Dosage: DOSE UNIT:UNKNOWN
     Route: 042
     Dates: start: 20080101
  10. GAMMAGARD S/D [Suspect]
     Dosage: DOSE UNIT:UNKNOWN
     Route: 042
     Dates: start: 20080101
  11. GAMMAGARD S/D [Suspect]
     Dosage: DOSE UNIT:UNKNOWN
     Route: 042
     Dates: start: 20080201
  12. GAMMAGARD S/D [Suspect]
     Dosage: DOSE UNIT:UNKNOWN
     Route: 042
     Dates: start: 20080201
  13. GAMMAGARD S/D [Suspect]
     Dosage: DOSE UNIT:UNKNOWN
     Route: 042
     Dates: start: 20080201
  14. GAMMAGARD S/D [Suspect]
     Dosage: DOSE UNIT:UNKNOWN
     Route: 042
     Dates: start: 20080201
  15. GAMMAGARD S/D [Suspect]
     Dosage: DOSE UNIT:UNKNOWN
     Route: 042
     Dates: start: 20080201
  16. GAMMAGARD S/D [Suspect]
     Dosage: DOSE UNIT:UNKNOWN
     Route: 042
     Dates: start: 20080201
  17. GAMMAGARD S/D [Suspect]
     Dosage: DOSE UNIT:UNKNOWN
     Route: 042
     Dates: start: 20080201
  18. GAMMAGARD S/D [Suspect]
     Dosage: DOSE UNIT:UNKNOWN
     Route: 042
     Dates: start: 20080201
  19. GAMMAGARD S/D [Suspect]
     Dosage: DOSE UNIT:UNKNOWN
     Route: 042
     Dates: start: 20080201
  20. GAMMAGARD S/D [Suspect]
     Dosage: DOSE UNIT:UNKNOWN
     Route: 042
     Dates: start: 20080201
  21. GAMMAGARD S/D [Suspect]
     Dosage: DOSE UNIT:UNKNOWN
     Route: 042
     Dates: start: 20080401
  22. GAMMAGARD S/D [Suspect]
     Dosage: DOSE UNIT:UNKNOWN
     Route: 042
     Dates: start: 20080401
  23. GAMMAGARD S/D [Suspect]
     Dosage: DOSE UNIT:UNKNOWN
     Route: 042
     Dates: start: 20080401
  24. GAMMAGARD S/D [Suspect]
     Dosage: DOSE UNIT:UNKNOWN
     Route: 042
     Dates: start: 20080401
  25. GAMMAGARD S/D [Suspect]
     Dosage: DOSE UNIT:UNKNOWN
     Route: 042
     Dates: start: 20080401
  26. GAMMAGARD S/D [Suspect]
     Dosage: DOSE UNIT:UNKNOWN
     Route: 042
     Dates: start: 20080401
  27. GAMMAGARD S/D [Suspect]
     Dosage: DOSE UNIT:UNKNOWN
     Route: 042
     Dates: start: 20080401
  28. GAMMAGARD S/D [Suspect]
     Dosage: DOSE UNIT:UNKNOWN
     Route: 042
     Dates: start: 20080401
  29. GAMMAGARD S/D [Suspect]
     Dosage: DOSE UNIT:UNKNOWN
     Route: 042
     Dates: start: 20080401
  30. GAMMAGARD S/D [Suspect]
     Dosage: DOSE UNIT:UNKNOWN
     Route: 042
     Dates: start: 20080401
  31. GAMMAGARD S/D [Suspect]
     Dosage: DOSE UNIT:UNKNOWN
     Route: 042
     Dates: start: 20080601
  32. GAMMAGARD S/D [Suspect]
     Dosage: DOSE UNIT:UNKNOWN
     Route: 042
     Dates: start: 20080601
  33. GAMMAGARD S/D [Suspect]
     Dosage: DOSE UNIT:UNKNOWN
     Route: 042
     Dates: start: 20080601
  34. GAMMAGARD S/D [Suspect]
     Dosage: DOSE UNIT:UNKNOWN
     Route: 042
     Dates: start: 20080601
  35. GAMMAGARD S/D [Suspect]
     Dosage: DOSE UNIT:UNKNOWN
     Route: 042
     Dates: start: 20080601
  36. GAMMAGARD S/D [Suspect]
     Dosage: DOSE UNIT:UNKNOWN
     Route: 042
     Dates: start: 20080601
  37. GAMMAGARD S/D [Suspect]
     Dosage: DOSE UNIT:UNKNOWN
     Route: 042
     Dates: start: 20080601
  38. GAMMAGARD S/D [Suspect]
     Dosage: DOSE UNIT:UNKNOWN
     Route: 042
     Dates: start: 20080601
  39. GAMMAGARD S/D [Suspect]
     Dosage: DOSE UNIT:UNKNOWN
     Route: 042
     Dates: start: 20080601
  40. GAMMAGARD S/D [Suspect]
     Dosage: DOSE UNIT:UNKNOWN
     Route: 042
     Dates: start: 20080601
  41. IMURAN [Concomitant]
     Indication: DRUG USE FOR UNKNOWN INDICATION
     Route: 065

REACTIONS (1)
  - HEPATITIS C [None]
